FAERS Safety Report 5997360-7 (Version None)
Quarter: 2008Q4

REPORT INFORMATION
  Report Type: 
  Country: None (occurrence: None)
  Receive Date: 20081212
  Receipt Date: 20081202
  Transmission Date: 20090506
  Serious: Yes (Hospitalization)
  Sender: FDA-Public Use
  Company Number: AU-PFIZER INC-2008151193

PATIENT

DRUGS (1)
  1. SUTENT [Suspect]
     Indication: METASTATIC RENAL CELL CARCINOMA
     Dates: start: 20071105, end: 20081007

REACTIONS (10)
  - ABDOMINAL DISCOMFORT [None]
  - ABDOMINAL PAIN [None]
  - DIARRHOEA [None]
  - DISEASE PROGRESSION [None]
  - DRUG TOLERANCE DECREASED [None]
  - METASTATIC RENAL CELL CARCINOMA [None]
  - MOUTH ULCERATION [None]
  - NAUSEA [None]
  - NEUTROPENIA [None]
  - THROMBOCYTOPENIA [None]
